FAERS Safety Report 6096619-5 (Version None)
Quarter: 2009Q1

REPORT INFORMATION
  Report Type: 
  Country: None (occurrence: None)
  Receive Date: 20090227
  Receipt Date: 20090225
  Transmission Date: 20090719
  Serious: Yes (Other)
  Sender: FDA-Public Use
  Company Number: CA-ASTRAZENECA-2009UW04557

PATIENT
  Sex: Female

DRUGS (5)
  1. CRESTOR [Suspect]
     Indication: HYPERLIPIDAEMIA
     Route: 048
     Dates: start: 20080201
  2. CRESTOR [Suspect]
     Route: 048
     Dates: end: 20081001
  3. LOSEC [Concomitant]
     Indication: ABDOMINAL DISCOMFORT
     Route: 048
  4. ASPIRIN [Concomitant]
     Indication: CARDIAC DISORDER
  5. GENERIC METOPROLOL [Concomitant]
     Indication: CARDIAC DISORDER
     Route: 048
     Dates: start: 20080201

REACTIONS (6)
  - ASTHENIA [None]
  - CHEST PAIN [None]
  - CONDITION AGGRAVATED [None]
  - DIZZINESS [None]
  - MUSCLE SPASMS [None]
  - WEIGHT INCREASED [None]
